FAERS Safety Report 11542024 (Version 1)
Quarter: 2015Q3

REPORT INFORMATION
  Report Type: Spontaneous
  Country: US (occurrence: US)
  Receive Date: 20150923
  Receipt Date: 20150923
  Transmission Date: 20151125
  Serious: Yes (Hospitalization)
  Sender: FDA-Public Use
  Company Number: US-BAYER-2015-384141

PATIENT
  Age: 77 Year
  Sex: Male

DRUGS (15)
  1. ATORVASTATIN [Concomitant]
     Active Substance: ATORVASTATIN
     Dosage: UNK
     Route: 065
     Dates: start: 20111221, end: 20141019
  2. LISINOPRIL. [Concomitant]
     Active Substance: LISINOPRIL
     Dosage: UNK
     Route: 065
     Dates: start: 20060130, end: 20141001
  3. XARELTO [Interacting]
     Active Substance: RIVAROXABAN
     Indication: THROMBOSIS PROPHYLAXIS
     Dosage: 20 MG, UNK
     Route: 048
     Dates: start: 20120305, end: 20140530
  4. GLYBURIDE W/METFORMIN [Concomitant]
     Active Substance: GLYBURIDE\METFORMIN
     Dosage: UNK
     Route: 065
     Dates: start: 20060130, end: 20141001
  5. SPIRONOLACTONE. [Concomitant]
     Active Substance: SPIRONOLACTONE
     Dosage: UNK
     Route: 065
     Dates: start: 20120317, end: 20141001
  6. DIGOXIN. [Concomitant]
     Active Substance: DIGOXIN
     Route: 065
     Dates: start: 20120320, end: 20141001
  7. IRON [IRON] [Concomitant]
     Active Substance: IRON
     Dosage: UNK
     Route: 065
     Dates: end: 20130715
  8. CLARINEX [LORATADINE,PSEUDOEPHEDRINE SULFATE] [Concomitant]
     Dosage: UNK
     Route: 065
     Dates: start: 20060130, end: 20141019
  9. XARELTO [Interacting]
     Active Substance: RIVAROXABAN
     Indication: ATRIAL FIBRILLATION
  10. OMEPRAZOLE. [Concomitant]
     Active Substance: OMEPRAZOLE
     Dosage: UNK
     Route: 065
     Dates: start: 20060130, end: 20141014
  11. ONGLYZA [Concomitant]
     Active Substance: SAXAGLIPTIN HYDROCHLORIDE
     Dosage: UNK
     Route: 065
     Dates: start: 20120817, end: 20141014
  12. FUROSEMIDE. [Concomitant]
     Active Substance: FUROSEMIDE
     Dosage: UNK
     Route: 065
     Dates: start: 20090428, end: 20141001
  13. XARELTO [Interacting]
     Active Substance: RIVAROXABAN
     Indication: CEREBROVASCULAR ACCIDENT PROPHYLAXIS
  14. ACETYLSALICYLIC ACID({=100 MG) [Suspect]
     Active Substance: ASPIRIN
     Indication: PRODUCT USED FOR UNKNOWN INDICATION
     Dosage: UNK
     Route: 065
  15. CARVEDILOL. [Concomitant]
     Active Substance: CARVEDILOL
     Dosage: UNK
     Route: 065
     Dates: start: 20071029, end: 20141001

REACTIONS (2)
  - Iron deficiency anaemia [Recovering/Resolving]
  - Gastrointestinal haemorrhage [Unknown]

NARRATIVE: CASE EVENT DATE: 20120828
